FAERS Safety Report 5009633-5 (Version None)
Quarter: 2006Q2

REPORT INFORMATION
  Report Type: 
  Country: None (occurrence: None)
  Receive Date: 20060524
  Receipt Date: 20060518
  Transmission Date: 20061013
  Serious: Yes (Hospitalization)
  Sender: FDA-Public Use
  Company Number: US-GLAXOSMITHKLINE-A0606226A

PATIENT
  Age: 79 Year
  Sex: Female

DRUGS (4)
  1. AVANDIA [Suspect]
     Route: 048
  2. VASOTEC [Concomitant]
  3. LASIX [Concomitant]
  4. ZOCOR [Concomitant]

REACTIONS (3)
  - CARDIAC DISORDER [None]
  - CARDIAC FAILURE CONGESTIVE [None]
  - FLUID OVERLOAD [None]
